FAERS Safety Report 9192291 (Version 2)
Quarter: 2013Q2

REPORT INFORMATION
  Report Type: Spontaneous
  Country: FR (occurrence: FR)
  Receive Date: 20130327
  Receipt Date: 20130412
  Transmission Date: 20140414
  Serious: Yes (Disabling, Other)
  Sender: FDA-Public Use
  Company Number: FR-ELI_LILLY_AND_COMPANY-FR201303007787

PATIENT
  Age: 51 Year
  Sex: Female

DRUGS (2)
  1. PROZAC [Suspect]
     Dosage: UNK, UNKNOWN
  2. TRIPTAN [Concomitant]
     Indication: MIGRAINE

REACTIONS (1)
  - Glaucoma [Unknown]
